FAERS Safety Report 10975210 (Version 1)
Quarter: 2015Q2

REPORT INFORMATION
  Report Type: Spontaneous
  Country: FR (occurrence: FR)
  Receive Date: 20150401
  Receipt Date: 20150401
  Transmission Date: 20150821
  Serious: Yes (Death, Other)
  Sender: FDA-Public Use
  Company Number: FR-ASTRAZENECA-2015SE28746

PATIENT
  Age: 1052 Month
  Sex: Male
  Weight: 65 kg

DRUGS (17)
  1. DIAFUSOR [Concomitant]
     Active Substance: NITROGLYCERIN
     Dosage: 5 MG/24 HOURS 1 DF DAILY
  2. BIONOLYTE [Concomitant]
     Active Substance: UNSPECIFIED INGREDIENT
  3. FLUCONAZOLE ARROW [Suspect]
     Active Substance: FLUCONAZOLE
     Route: 065
     Dates: start: 2014, end: 20141226
  4. MAGNE B6 [Concomitant]
     Active Substance: MAGNESIUM\PYRIDOXINE
     Dates: start: 2014
  5. INEXIUM [Suspect]
     Active Substance: ESOMEPRAZOLE
     Route: 048
  6. GENTAMICINE PANPAHRMA [Suspect]
     Active Substance: GENTAMICIN
     Route: 065
     Dates: start: 2014, end: 2014
  7. PIPERACILLIN, TAZOBACTAM [Suspect]
     Active Substance: PIPERACILLIN SODIUM\TAZOBACTAM SODIUM
     Route: 065
     Dates: start: 2014, end: 20141226
  8. BISOCE [Concomitant]
     Active Substance: BISOPROLOL
  9. LOXEN [Concomitant]
     Active Substance: NICARDIPINE HYDROCHLORIDE
     Dates: start: 2014
  10. IKOREL [Concomitant]
     Active Substance: NICORANDIL
  11. CEFTRIAXONE PANPHARMA [Suspect]
     Active Substance: CEFTRIAXONE
     Indication: PANCYTOPENIA
     Route: 065
     Dates: start: 20141125
  12. FLAGYL [Suspect]
     Active Substance: METRONIDAZOLE\METRONIDAZOLE HYDROCHLORIDE
     Indication: PANCYTOPENIA
     Route: 065
     Dates: start: 20141125
  13. MYTELASE [Concomitant]
     Active Substance: AMBENONIUM CHLORIDE
  14. KARDEGIC [Concomitant]
     Active Substance: ASPIRIN LYSINE
  15. ZOPICLONE ARROW [Concomitant]
     Active Substance: ZOPICLONE
     Dates: start: 2014
  16. LANTUS [Concomitant]
     Active Substance: INSULIN GLARGINE
  17. HUMALOG [Concomitant]
     Active Substance: INSULIN LISPRO

REACTIONS (2)
  - Death [Fatal]
  - Clostridium difficile infection [Unknown]

NARRATIVE: CASE EVENT DATE: 201412
